FAERS Safety Report 5033206-1 (Version None)
Quarter: 2006Q2

REPORT INFORMATION
  Report Type: 
  Country: None (occurrence: None)
  Receive Date: 20060620
  Receipt Date: 20060609
  Transmission Date: 20061013
  Serious: Yes (Death)
  Sender: FDA-Public Use
  Company Number: 2006-DE-03006GD

PATIENT

DRUGS (2)
  1. NAPROXEN [Suspect]
     Indication: MUSCULOSKELETAL DISORDER
  2. ESOMEPRAZOLE (ESOMEPRAZOLE) [Suspect]
     Indication: PROPHYLAXIS AGAINST GASTROINTESTINAL ULCER
     Dosage: 40 MG, PO
     Route: 048

REACTIONS (1)
  - NON-SMALL CELL LUNG CANCER [None]
